FAERS Safety Report 18174073 (Version 5)
Quarter: 2022Q1

REPORT INFORMATION
  Report Type: Other
  Country: CA (occurrence: CA)
  Receive Date: 20200820
  Receipt Date: 20220111
  Transmission Date: 20220423
  Serious: Yes (Other)
  Sender: FDA-Public Use
  Company Number: CA-CELLTRION INC.-2020CA025313

PATIENT

DRUGS (19)
  1. TRASTUZUMAB [Suspect]
     Active Substance: TRASTUZUMAB
     Indication: Breast cancer
     Route: 065
  2. ESBRIET [Suspect]
     Active Substance: PIRFENIDONE
     Indication: Idiopathic pulmonary fibrosis
     Dosage: 801 MILLIGRAM, TID (3 EVERY 1 DAY)
     Route: 048
  3. ESBRIET [Suspect]
     Active Substance: PIRFENIDONE
     Dosage: 534 MILLIGRAM, TID (3 EVERY 1 DAY)
     Route: 048
  4. ESBRIET [Suspect]
     Active Substance: PIRFENIDONE
     Dosage: 1602 MILLIGRAM
     Route: 048
  5. ESBRIET [Suspect]
     Active Substance: PIRFENIDONE
     Dosage: 2403 MILLIGRAM
     Route: 048
  6. ESBRIET [Suspect]
     Active Substance: PIRFENIDONE
     Dosage: 534 MILLIGRAM, TID (3 EVERY 1 DAY)
     Route: 048
  7. ESBRIET [Suspect]
     Active Substance: PIRFENIDONE
     Dosage: 801 MILLIGRAM, TID (3 EVERY 1 DAY)
     Route: 048
  8. ESBRIET [Suspect]
     Active Substance: PIRFENIDONE
     Indication: Idiopathic pulmonary fibrosis
     Dosage: 267 MG, (3 EVERY 1 DAY)
     Route: 048
  9. ATIVAN [Concomitant]
     Active Substance: LORAZEPAM
  10. AZATHIOPRINE [Concomitant]
     Active Substance: AZATHIOPRINE
     Dosage: UNK
  11. BIAXIN [Concomitant]
     Active Substance: CLARITHROMYCIN
     Dosage: UNK
  12. CALCIUM CARBONATE [Concomitant]
     Active Substance: CALCIUM CARBONATE
  13. ESOMEPRAZOLE [Concomitant]
     Active Substance: ESOMEPRAZOLE
     Route: 065
  14. HYDROCHLOROTHIAZIDE [Concomitant]
     Active Substance: HYDROCHLOROTHIAZIDE
     Route: 065
  15. FERROUS SULFATE ANHYDROUS [Concomitant]
     Active Substance: FERROUS SULFATE ANHYDROUS
  16. PREDNISONE [Concomitant]
     Active Substance: PREDNISONE
  17. RISEDRONATE SODIUM [Concomitant]
     Active Substance: RISEDRONATE SODIUM
  18. TAMOXIFEN [Concomitant]
     Active Substance: TAMOXIFEN
  19. HYDROCHLOROTHIAZIDE [Concomitant]
     Active Substance: HYDROCHLOROTHIAZIDE

REACTIONS (22)
  - Aortic dilatation [Not Recovered/Not Resolved]
  - Cushingoid [Not Recovered/Not Resolved]
  - Lung diffusion test decreased [Not Recovered/Not Resolved]
  - Productive cough [Not Recovered/Not Resolved]
  - Pulmonary function test abnormal [Not Recovered/Not Resolved]
  - Pulmonary hypertension [Not Recovered/Not Resolved]
  - Skin exfoliation [Not Recovered/Not Resolved]
  - Sleep disorder [Not Recovered/Not Resolved]
  - Synovial cyst [Not Recovered/Not Resolved]
  - Organising pneumonia [Not Recovered/Not Resolved]
  - Middle insomnia [Not Recovered/Not Resolved]
  - Diarrhoea [Not Recovered/Not Resolved]
  - Rash erythematous [Not Recovered/Not Resolved]
  - Dry skin [Not Recovered/Not Resolved]
  - Erythema [Not Recovered/Not Resolved]
  - Fatigue [Not Recovered/Not Resolved]
  - Hot flush [Not Recovered/Not Resolved]
  - Hyperhidrosis [Not Recovered/Not Resolved]
  - Nasopharyngitis [Not Recovered/Not Resolved]
  - Nausea [Not Recovered/Not Resolved]
  - Oxygen saturation decreased [Not Recovered/Not Resolved]
  - Weight decreased [Not Recovered/Not Resolved]
